FAERS Safety Report 22354625 (Version 11)
Quarter: 2024Q2

REPORT INFORMATION
  Report Type: Spontaneous
  Country: CA (occurrence: CA)
  Receive Date: 20230523
  Receipt Date: 20240429
  Transmission Date: 20240715
  Serious: Yes (Hospitalization, Other)
  Sender: FDA-Public Use
  Company Number: CA-PFIZER INC-202300159599

PATIENT
  Age: 23 Year
  Sex: Male

DRUGS (6)
  1. ABRILADA [Suspect]
     Active Substance: ADALIMUMAB-AFZB
     Indication: Crohn^s disease
     Dosage: 40 MG, EVERY 2 WEEK, INDUCTION 160MG WEEK 0, 80MG WEEK 2 THEN 40MG STARTING WEEK 4
     Route: 058
     Dates: start: 20230119, end: 2023
  2. ABRILADA [Suspect]
     Active Substance: ADALIMUMAB-AFZB
     Dosage: 40MG, EVERY 2 WEEK, INDUCTION 160MG WEEK 0, 80MG WEEK 2 THEN 40MG STARTING WEEK 4
     Route: 058
     Dates: start: 20230517
  3. ABRILADA [Suspect]
     Active Substance: ADALIMUMAB-AFZB
     Dosage: 40 MG, WEEKLY
     Route: 058
     Dates: start: 2023, end: 2023
  4. ABRILADA [Suspect]
     Active Substance: ADALIMUMAB-AFZB
     Dosage: 80 MG, WEEKLY
     Route: 058
     Dates: start: 2023, end: 2023
  5. ABRILADA [Suspect]
     Active Substance: ADALIMUMAB-AFZB
     Dosage: 160 MG, WEEKLY (160MG (4 PENS) EVERY 1 WEEK) (APPROVED 120MG NOT 160MG)
     Route: 058
     Dates: start: 202312
  6. ABRILADA [Suspect]
     Active Substance: ADALIMUMAB-AFZB
     Dosage: 160 MG, WEEKLY (160MG (4 PENS) EVERY 1 WEEK) (APPROVED 120MG NOT 160MG)
     Route: 058
     Dates: start: 20240204

REACTIONS (17)
  - Infected fistula [Unknown]
  - Abscess [Not Recovered/Not Resolved]
  - Therapeutic response shortened [Unknown]
  - Fistula [Unknown]
  - Inflammation [Unknown]
  - Psoriasis [Not Recovered/Not Resolved]
  - Food poisoning [Not Recovered/Not Resolved]
  - Anxiety [Unknown]
  - Condition aggravated [Unknown]
  - Fatigue [Unknown]
  - Pain [Not Recovered/Not Resolved]
  - Off label use [Unknown]
  - Off label use [Unknown]
  - Inappropriate schedule of product administration [Unknown]
  - Incorrect dose administered [Unknown]
  - Device breakage [Unknown]
  - Drug dose omission by device [Unknown]

NARRATIVE: CASE EVENT DATE: 20230101
